FAERS Safety Report 7208320-2 (Version None)
Quarter: 2010Q4

REPORT INFORMATION
  Report Type: 
  Country: None (occurrence: None)
  Receive Date: 20101230
  Receipt Date: 20101230
  Transmission Date: 20110411
  Serious: Yes (Other)
  Sender: FDA-Public Use
  Company Number: None

PATIENT
  Age: 49 Year
  Sex: Female
  Weight: 68.9467 kg

DRUGS (1)
  1. OXYCONTIN [Suspect]
     Indication: PAIN
     Dosage: 20 MG TID PO
     Route: 048
     Dates: start: 20101015, end: 20101229

REACTIONS (4)
  - DRUG INEFFECTIVE [None]
  - GASTRIC DISORDER [None]
  - INADEQUATE ANALGESIA [None]
  - PRODUCT FORMULATION ISSUE [None]
